FAERS Safety Report 19521316 (Version 2)
Quarter: 2021Q3

REPORT INFORMATION
  Report Type: Spontaneous
  Country: US (occurrence: US)
  Receive Date: 20210712
  Receipt Date: 20210913
  Transmission Date: 20211014
  Serious: No
  Sender: FDA-Public Use
  Company Number: NVSC2021US150036

PATIENT
  Sex: Female

DRUGS (2)
  1. PROMACTA [Suspect]
     Active Substance: ELTROMBOPAG OLAMINE
     Indication: THROMBOCYTOPENIA
     Dosage: 150 MG, BID
     Route: 048
     Dates: start: 202012
  2. PROMACTA [Suspect]
     Active Substance: ELTROMBOPAG OLAMINE
     Indication: CHRONIC MYELOID LEUKAEMIA
     Dosage: 75 MG, BID
     Route: 048
     Dates: start: 20210423

REACTIONS (3)
  - Illness [Unknown]
  - Headache [Unknown]
  - Product use in unapproved indication [Unknown]
